FAERS Safety Report 7277812-2 (Version None)
Quarter: 2011Q1

REPORT INFORMATION
  Report Type: 
  Country: None (occurrence: None)
  Receive Date: 20110207
  Receipt Date: 20110202
  Transmission Date: 20110831
  Serious: Yes (Death)
  Sender: FDA-Public Use
  Company Number: FR-JNJFOC-20110103095

PATIENT
  Sex: Female
  Weight: 112 kg

DRUGS (7)
  1. NISISCO [Concomitant]
     Indication: HYPERTENSION
     Route: 065
  2. METFORMIN HCL [Concomitant]
     Indication: DIABETES MELLITUS
     Route: 065
  3. TAHOR [Concomitant]
     Indication: HYPERCHOLESTEROLAEMIA
     Route: 065
  4. RISPERDAL CONSTA [Suspect]
     Dosage: TOTAL NUMBER OF INJECTION : 2 (ON 17-DEC-2010 AND 30-DEC-2010)
     Route: 030
  5. VERAPAMIL [Concomitant]
     Indication: HYPERTENSION
     Route: 065
  6. RISPERDAL CONSTA [Suspect]
     Indication: SCHIZOPHRENIA
     Route: 030
  7. RISPERDAL [Suspect]
     Indication: SCHIZOPHRENIA
     Route: 048

REACTIONS (2)
  - CEREBROVASCULAR ACCIDENT [None]
  - SUDDEN DEATH [None]
